FAERS Safety Report 9271755 (Version 1)
Quarter: 2013Q2

REPORT INFORMATION
  Report Type: Spontaneous
  Country: US (occurrence: US)
  Receive Date: 20130506
  Receipt Date: 20130506
  Transmission Date: 20140414
  Serious: Yes (Death, Life-Threatening)
  Sender: FDA-Public Use
  Company Number: US-PFIZER INC-0007111001PHAMED

PATIENT
  Age: 54 Year
  Sex: Male

DRUGS (49)
  1. HALCION [Suspect]
     Indication: SLEEP DISORDER
     Dosage: PRN UNIT DOSE: NULL OR RANGE LOW TO HI): 00000.25 TO 00000.50 MG FREQUENCY: 001 EVERY NULL SECONDS
     Route: 048
     Dates: start: 198702
  2. HALCION [Suspect]
     Route: 048
  3. HALCION [Suspect]
     Dosage: UNK
     Route: 048
     Dates: start: 1985, end: 198711
  4. XANAX [Suspect]
     Indication: ANXIETY
     Dosage: UNK
     Route: 048
     Dates: start: 1985, end: 198711
  5. XANAX [Suspect]
     Dosage: UNIT DOSE: NULL OR RANGE (LOW TO HI): 00000.25 TO 00000.50 MG FREQUENCY: 001 EVERY NULL SECONDS
     Route: 048
     Dates: start: 198702
  6. FIORINAL [Concomitant]
  7. SYNALGOS-DC [Concomitant]
     Dosage: UNK
     Dates: start: 198708
  8. ELAVIL [Concomitant]
  9. TRIAVIL [Concomitant]
  10. ASENDIN [Concomitant]
     Dosage: UNK
     Dates: start: 198612
  11. TENORMIN [Concomitant]
  12. TENORETIC [Concomitant]
  13. AKINETON [Concomitant]
  14. WELLBUTRIN [Concomitant]
     Dosage: UNK
     Dates: start: 19920711, end: 19920713
  15. BUSPAR [Concomitant]
     Dosage: UNK
     Dates: start: 19920711
  16. FIORICET [Concomitant]
  17. CAPOTEN [Concomitant]
  18. THORAZINE [Concomitant]
  19. WYGESIC [Concomitant]
     Dosage: UNK
     Dates: start: 1985
  20. VALIUM [Concomitant]
  21. SINEQUAN [Concomitant]
     Dosage: UNK
     Dates: start: 19920713
  22. PROSOM [Concomitant]
     Dosage: UNK
     Dates: start: 19920711
  23. PROZAC [Concomitant]
     Dosage: UNK
     Dates: start: 198802
  24. DALMANE [Concomitant]
     Dosage: UNK
     Route: 048
     Dates: start: 198703
  25. LASIX [Concomitant]
  26. DIABETA [Concomitant]
  27. GLUCOTROL [Concomitant]
     Route: 048
  28. MAXZIDE [Concomitant]
  29. VICODIN [Concomitant]
     Dosage: UNK
     Dates: start: 198604
  30. TUSSIONEX SUSPENSION [Concomitant]
  31. TOFRANIL [Concomitant]
  32. INSULIN [Concomitant]
  33. ORUDIS [Concomitant]
     Dosage: UNK
     Dates: start: 1988
  34. ATIVAN [Concomitant]
     Dosage: UNK
     Dates: start: 198602
  35. SKELAXIN [Concomitant]
  36. NITROSTAT [Concomitant]
  37. CYLERT [Concomitant]
     Dosage: UNK
     Dates: start: 1985
  38. PLEGINE [Concomitant]
     Dosage: UNK
     Dates: start: 198505
  39. IONAMIN [Concomitant]
     Dosage: UNK
     Dates: start: 198612
  40. FELDENE [Concomitant]
     Dosage: UNK
     Dates: start: 19890501
  41. DECANAMINE SR [Concomitant]
     Dosage: UNK
     Dates: start: 198703
  42. DORAL [Concomitant]
  43. ZANTAC [Concomitant]
     Dosage: UNK
     Route: 048
     Dates: start: 1988
  44. ZOLOFT [Concomitant]
  45. RESTORIL [Concomitant]
  46. DESYREL [Concomitant]
  47. TRAZODONE [Concomitant]
  48. TRILISATE [Concomitant]
  49. ASPERCREME [Concomitant]

REACTIONS (7)
  - Aggression [Fatal]
  - Anxiety [Fatal]
  - Hallucination [Fatal]
  - Paranoia [Fatal]
  - Overdose [Fatal]
  - Restlessness [Fatal]
  - Completed suicide [Fatal]
